FAERS Safety Report 4751903-X (Version None)
Quarter: 2005Q3

REPORT INFORMATION
  Report Type: 
  Country: None (occurrence: None)
  Receive Date: 20050824
  Receipt Date: 20050819
  Transmission Date: 20060218
  Serious: Yes (Disabling)
  Sender: FDA-Public Use
  Company Number: US-MERCK-0508USA03308

PATIENT
  Age: 66 Year
  Sex: Female

DRUGS (2)
  1. DECADRON [Suspect]
     Indication: BRAIN OEDEMA
     Route: 048
     Dates: start: 20041103, end: 20050126
  2. KEPPRA [Suspect]
     Indication: CONVULSION
     Route: 065
     Dates: start: 20041103

REACTIONS (6)
  - ASTHENIA [None]
  - CHROMATOPSIA [None]
  - DIABETES MELLITUS INSULIN-DEPENDENT [None]
  - INTRAOCULAR PRESSURE INCREASED [None]
  - VISUAL ACUITY REDUCED [None]
  - VISUAL FIELD DEFECT [None]
